FAERS Safety Report 17885108 (Version 1)
Quarter: 2020Q2

REPORT INFORMATION
  Report Type: Spontaneous
  Country: US (occurrence: US)
  Receive Date: 20200611
  Receipt Date: 20200611
  Transmission Date: 20200714
  Serious: Yes (Other)
  Sender: FDA-Public Use
  Company Number: US-AVENTIS-200618646US

PATIENT

DRUGS (4)
  1. LANTUS [Suspect]
     Active Substance: INSULIN GLARGINE
     Indication: TYPE 2 DIABETES MELLITUS
     Dosage: 40 DF,QD
     Dates: end: 200610
  2. METFORMIN HYDROCHLORIDE. [Concomitant]
     Active Substance: METFORMIN HYDROCHLORIDE
     Dosage: UNK UNK,AC
  3. LANTUS [Suspect]
     Active Substance: INSULIN GLARGINE
     Dosage: 22 DF,QD
     Dates: start: 200610
  4. STARLIX [Concomitant]
     Active Substance: NATEGLINIDE
     Dosage: UNK UNK,AC

REACTIONS (2)
  - Hypoglycaemia [Recovered/Resolved]
  - Disorientation [Unknown]

NARRATIVE: CASE EVENT DATE: 200610
